FAERS Safety Report 17699103 (Version 1)
Quarter: 2020Q2

REPORT INFORMATION
  Report Type: Spontaneous
  Country: US (occurrence: US)
  Receive Date: 20200422
  Receipt Date: 20200422
  Transmission Date: 20200714
  Serious: No
  Sender: FDA-Public Use
  Company Number: None

PATIENT
  Age: 35 Year
  Sex: Female

DRUGS (1)
  1. QSYMIA [Suspect]
     Active Substance: PHENTERMINE HYDROCHLORIDE\TOPIRAMATE
     Indication: PICKWICKIAN SYNDROME
     Dosage: ?          OTHER DOSE:7.5MG/46MG;?
     Route: 048
     Dates: start: 20200130, end: 20200401

REACTIONS (2)
  - Pregnancy with contraceptive device [None]
  - Therapy interrupted [None]

NARRATIVE: CASE EVENT DATE: 20200421
